FAERS Safety Report 16882705 (Version 1)
Quarter: 2019Q4

REPORT INFORMATION
  Report Type: Spontaneous
  Country: CH (occurrence: CH)
  Receive Date: 20191003
  Receipt Date: 20191003
  Transmission Date: 20200122
  Serious: Yes (Other)
  Sender: FDA-Public Use
  Company Number: CH-BEH-2019107532

PATIENT
  Age: 39 Year
  Sex: Female

DRUGS (10)
  1. VIRAMUNE [Suspect]
     Active Substance: NEVIRAPINE
     Indication: HIV TEST
  2. RHOPHYLAC [Suspect]
     Active Substance: HUMAN RHO(D) IMMUNE GLOBULIN
     Indication: PRODUCT USED FOR UNKNOWN INDICATION
     Dosage: 300 MICROGRAM, TOT
     Route: 065
     Dates: start: 20190104, end: 20190104
  3. KIVEXA [Suspect]
     Active Substance: ABACAVIR SULFATE\LAMIVUDINE
     Indication: HIV TEST
  4. RHOPHYLAC [Suspect]
     Active Substance: HUMAN RHO(D) IMMUNE GLOBULIN
     Indication: PRODUCT USED FOR UNKNOWN INDICATION
     Dosage: 300 MICROGRAM, TOT
     Route: 065
     Dates: start: 20190104, end: 20190104
  5. VIRAMUNE [Suspect]
     Active Substance: NEVIRAPINE
     Indication: HIV TEST
  6. LAMIVUDINE. [Concomitant]
     Active Substance: LAMIVUDINE
  7. VIRAMUNE [Concomitant]
     Active Substance: NEVIRAPINE
     Indication: HIV TEST
  8. CYTOTEC NASOGASTRIQUE [Suspect]
     Active Substance: MISOPROSTOL
     Indication: ABORTION INDUCED
     Dosage: 400 MICROGRAM, TOT
     Route: 065
     Dates: start: 20190104, end: 20190104
  9. ABACAVIR. [Concomitant]
     Active Substance: ABACAVIR
  10. VIRAMUNE [Concomitant]
     Active Substance: NEVIRAPINE
     Indication: HIV TEST

REACTIONS (2)
  - Premature baby [Recovered/Resolved]
  - No adverse event [Unknown]

NARRATIVE: CASE EVENT DATE: 20190624
